FAERS Safety Report 7437915-6 (Version None)
Quarter: 2011Q2

REPORT INFORMATION
  Report Type: 
  Country: None (occurrence: None)
  Receive Date: 20110426
  Receipt Date: 20110419
  Transmission Date: 20111010
  Serious: Yes (Hospitalization)
  Sender: FDA-Public Use
  Company Number: B0715208A

PATIENT
  Age: 23 Year
  Sex: Male

DRUGS (4)
  1. CLONAZEPAM [Concomitant]
     Dosage: 3MG PER DAY
     Route: 048
  2. LITHIUM [Concomitant]
     Dosage: 1600MG PER DAY
     Route: 065
  3. LAMOTRIGINE [Suspect]
     Dosage: 25MG PER DAY
     Route: 065
     Dates: start: 20080101
  4. VALPROATE SODIUM [Concomitant]
     Dosage: 1000MG PER DAY
     Route: 065

REACTIONS (6)
  - INSOMNIA [None]
  - PSYCHOMOTOR HYPERACTIVITY [None]
  - TOBACCO USER [None]
  - MANIA [None]
  - ELEVATED MOOD [None]
  - GRANDIOSITY [None]
